FAERS Safety Report 4690597-9 (Version None)
Quarter: 2005Q2

REPORT INFORMATION
  Report Type: 
  Country: None (occurrence: None)
  Receive Date: 20050615
  Receipt Date: 20050607
  Transmission Date: 20051028
  Serious: Yes (Other)
  Sender: FDA-Public Use
  Company Number: PHEH2005US06452

PATIENT

DRUGS (1)
  1. MIACALCIN [Suspect]
     Route: 045

REACTIONS (18)
  - ADVERSE DRUG REACTION [None]
  - ASTHENIA [None]
  - BACK PAIN [None]
  - CHOKING SENSATION [None]
  - CONFUSIONAL STATE [None]
  - DIARRHOEA [None]
  - DIZZINESS [None]
  - FLUSHING [None]
  - HYPERHIDROSIS [None]
  - NASAL DISCOMFORT [None]
  - NAUSEA [None]
  - PAIN [None]
  - PYREXIA [None]
  - RESPIRATORY DISORDER [None]
  - RHINITIS [None]
  - SINUS HEADACHE [None]
  - SNEEZING [None]
  - SYNCOPE [None]
